FAERS Safety Report 16011470 (Version 10)
Quarter: 2022Q4

REPORT INFORMATION
  Report Type: Report from Study
  Country: JP (occurrence: JP)
  Receive Date: 20190227
  Receipt Date: 20221227
  Transmission Date: 20230113
  Serious: Yes (Hospitalization)
  Sender: FDA-Public Use
  Company Number: JP-ONO-2019JP006729

PATIENT
  Age: 76 Year
  Sex: Female
  Weight: 39.1 kg

DRUGS (9)
  1. ETELCALCETIDE [Suspect]
     Active Substance: ETELCALCETIDE
     Indication: Hyperparathyroidism secondary
     Dosage: 5 MILLIGRAM, Q56H
     Route: 065
     Dates: start: 20181119, end: 20181207
  2. ETELCALCETIDE [Suspect]
     Active Substance: ETELCALCETIDE
     Dosage: 2.5  MILLIGRAM, Q56H
     Route: 065
     Dates: start: 20181210
  3. FOSRENOL [Concomitant]
     Active Substance: LANTHANUM CARBONATE
     Indication: Hyperphosphataemia
     Dosage: 1500 MILLIGRAM
     Route: 048
     Dates: start: 20171020, end: 20181225
  4. OXAROL [Concomitant]
     Active Substance: MAXACALCITOL
     Dosage: 5 MICROGRAM, Q56H
     Route: 042
     Dates: start: 20181112
  5. ERYTHROPOIETIN [Concomitant]
     Active Substance: ERYTHROPOIETIN
     Dosage: 9000 INTERNATIONAL UNIT, QWK
     Route: 065
     Dates: end: 20181224
  6. NEXIUM [Concomitant]
     Active Substance: ESOMEPRAZOLE MAGNESIUM
     Indication: Gastrooesophageal reflux disease
     Dosage: 20 MILLIGRAM
     Route: 048
     Dates: start: 20171215, end: 20181224
  7. P-tol [Concomitant]
     Indication: Hyperphosphaturia
     Dosage: 750 MILLIGRAM
     Route: 048
     Dates: start: 20170823, end: 20181225
  8. SENNOSIDES [Concomitant]
     Active Substance: SENNOSIDES
     Indication: Constipation
     Dosage: 48 MILLIGRAM
     Route: 048
     Dates: start: 20170823, end: 20181225
  9. Fesin [Concomitant]
     Dosage: 40 MILLIGRAM, QD
     Route: 065
     Dates: end: 20181219

REACTIONS (1)
  - Airway burns [Unknown]

NARRATIVE: CASE EVENT DATE: 20181225
